FAERS Safety Report 4726087-4 (Version None)
Quarter: 2005Q3

REPORT INFORMATION
  Report Type: 
  Country: None (occurrence: None)
  Receive Date: 20050725
  Receipt Date: 20050712
  Transmission Date: 20060218
  Serious: Yes (Hospitalization, Other)
  Sender: FDA-Public Use
  Company Number: 2005066673

PATIENT
  Age: 46 Year
  Sex: Female

DRUGS (2)
  1. CELEBREX [Suspect]
     Indication: ILL-DEFINED DISORDER
     Dosage: ORAL
     Route: 048
     Dates: end: 20050101
  2. LYRICA [Suspect]
     Indication: CERVICAL ROOT PAIN
     Dosage: 75 MG, 2 IN 1 D, ORAL
     Route: 048
     Dates: start: 20050331, end: 20050415

REACTIONS (6)
  - BRAIN OEDEMA [None]
  - CEREBRAL DISORDER [None]
  - COORDINATION ABNORMAL [None]
  - DEPRESSED LEVEL OF CONSCIOUSNESS [None]
  - REVERSIBLE POSTERIOR LEUKOENCEPHALOPATHY SYNDROME [None]
  - VISUAL DISTURBANCE [None]
